FAERS Safety Report 8553557-3 (Version None)
Quarter: 2012Q3

REPORT INFORMATION
  Report Type: 
  Country: None (occurrence: None)
  Receive Date: 20120731
  Receipt Date: 20120720
  Transmission Date: 20120928
  Serious: No
  Sender: FDA-Public Use
  Company Number: US-PFIZER INC-2012176275

PATIENT
  Sex: Female
  Weight: 93.878 kg

DRUGS (7)
  1. LYRICA [Suspect]
     Indication: TRIGEMINAL NEURALGIA
     Dosage: 150 MG, DAILY
     Route: 048
     Dates: start: 20120101
  2. OXCARBAZEPINE [Suspect]
     Dosage: 300 MG, 2X/DAY
  3. LYRICA [Suspect]
     Dosage: 100 MG IN AM AND 100 MG IN PM
  4. LYRICA [Suspect]
     Dosage: 100 MG IN THE AFTERNOON AND 150 MG AT BEDTIME
  5. OXCARBAZEPINE [Suspect]
     Indication: TRIGEMINAL NEURALGIA
     Dosage: 600 MG, 2X/DAY
     Dates: start: 20110101
  6. LYRICA [Suspect]
     Dosage: 100 MG, DAILY
  7. LYRICA [Suspect]
     Dosage: 150 MG IN AM AND 300 MG AT BEDTIME

REACTIONS (9)
  - FEELING ABNORMAL [None]
  - SOMNOLENCE [None]
  - ASTHENIA [None]
  - TRIGEMINAL NEURALGIA [None]
  - DISTURBANCE IN ATTENTION [None]
  - WEIGHT INCREASED [None]
  - BLOOD SODIUM DECREASED [None]
  - BLOOD PRESSURE DECREASED [None]
  - PAIN [None]
